FAERS Safety Report 9156881 (Version 2)
Quarter: 2013Q1

REPORT INFORMATION
  Report Type: Report from Study
  Country: AU (occurrence: AU)
  Receive Date: 20130312
  Receipt Date: 20130314
  Transmission Date: 20140127
  Serious: Yes (Other)
  Sender: FDA-Public Use
  Company Number: PHHY2013AU014167

PATIENT
  Age: 34 Year
  Sex: Male

DRUGS (3)
  1. CLOZARIL [Suspect]
     Indication: SCHIZOPHRENIA
     Dosage: 425 MG, DAILY
     Route: 048
     Dates: start: 20121002, end: 20130212
  2. HYOSCINE [Concomitant]
     Indication: SALIVARY HYPERSECRETION
     Dosage: 300 UG, PRN BID
     Route: 048
     Dates: start: 20130108, end: 20130212
  3. BROMIDES [Concomitant]
     Indication: SALIVARY HYPERSECRETION
     Dosage: 300 UG, PRN, BID
     Route: 048
     Dates: start: 20130108, end: 20130212

REACTIONS (5)
  - Neutropenia [Recovered/Resolved]
  - Leukopenia [Recovered/Resolved]
  - Monocyte count decreased [Recovered/Resolved]
  - Agranulocytosis [Unknown]
  - Haemoglobin increased [Unknown]
